FAERS Safety Report 23897168 (Version 2)
Quarter: 2024Q2

REPORT INFORMATION
  Report Type: Spontaneous
  Country: US (occurrence: US)
  Receive Date: 20240524
  Receipt Date: 20240528
  Transmission Date: 20240716
  Serious: Yes (Hospitalization, Other)
  Sender: FDA-Public Use
  Company Number: US-BRISTOL-MYERS SQUIBB COMPANY-2024-076865

PATIENT
  Age: 77 Year
  Sex: Female
  Weight: 58.06 kg

DRUGS (2)
  1. LENALIDOMIDE [Suspect]
     Active Substance: LENALIDOMIDE
     Indication: Plasma cell myeloma
     Dosage: DAILY 1-21, THEN 7 DAYS OFF
     Route: 048
     Dates: start: 20230905, end: 20240421
  2. LENALIDOMIDE [Suspect]
     Active Substance: LENALIDOMIDE
     Dosage: DAILY 1-21, THEN 7 DAYS OFF
     Route: 048
     Dates: start: 20240510

REACTIONS (6)
  - Bronchitis [Recovered/Resolved]
  - Pneumonia [Recovered/Resolved]
  - Back pain [Recovering/Resolving]
  - White blood cell count decreased [Not Recovered/Not Resolved]
  - Hepatic steatosis [Recovering/Resolving]
  - Liver function test increased [Recovering/Resolving]

NARRATIVE: CASE EVENT DATE: 20240421
